FAERS Safety Report 14406662 (Version 1)
Quarter: 2018Q1

REPORT INFORMATION
  Report Type: Spontaneous
  Country: US (occurrence: US)
  Receive Date: 20180118
  Receipt Date: 20180118
  Transmission Date: 20180509
  Serious: Yes (Other)
  Sender: FDA-Public Use
  Company Number: None

PATIENT
  Age: 75 Year
  Sex: Female
  Weight: 84.82 kg

DRUGS (11)
  1. ACAPELLA DEVICE [Concomitant]
  2. AIR-DUO INHALER [Concomitant]
  3. BENICAR [Concomitant]
     Active Substance: OLMESARTAN MEDOXOMIL
  4. MULTI VITAMINS [Concomitant]
     Active Substance: VITAMINS
  5. FAMOTIDINE. [Concomitant]
     Active Substance: FAMOTIDINE
  6. LEVOFLOXACIN 500MG [Suspect]
     Active Substance: LEVOFLOXACIN
     Indication: PRODUCTIVE COUGH
     Dosage: 7 PILLS 1 A DAY
     Route: 048
     Dates: start: 20180105, end: 20180108
  7. FLONASE [Concomitant]
     Active Substance: FLUTICASONE PROPIONATE
  8. COQ10 [Concomitant]
     Active Substance: UBIDECARENONE
  9. PRESERVISION [Concomitant]
     Active Substance: MINERALS\VITAMINS
  10. VITAMIN D3 [Concomitant]
     Active Substance: CHOLECALCIFEROL
  11. AMOX-CLAV [Concomitant]
     Active Substance: AMOXICILLIN\CLAVULANATE POTASSIUM

REACTIONS (5)
  - Therapy change [None]
  - Arthralgia [None]
  - Pain [None]
  - Pain in extremity [None]
  - Insomnia [None]

NARRATIVE: CASE EVENT DATE: 20180107
